FAERS Safety Report 4746784-4 (Version None)
Quarter: 2005Q3

REPORT INFORMATION
  Report Type: 
  Country: None (occurrence: None)
  Receive Date: 20050815
  Receipt Date: 20050802
  Transmission Date: 20060218
  Serious: Yes (Hospitalization, Disabling, Other)
  Sender: FDA-Public Use
  Company Number: USA0508104407

PATIENT
  Age: 84 Year
  Sex: Female
  Weight: 77 kg

DRUGS (2)
  1. HUMALOG [Suspect]
     Dosage: 1 U/2 DAY
     Dates: start: 20050201
  2. HUMULIN N [Suspect]
     Dosage: 7 U DAY
     Dates: start: 20040101

REACTIONS (7)
  - ARTHRITIS [None]
  - CELLULITIS [None]
  - DYSPNOEA [None]
  - PHARMACEUTICAL PRODUCT COMPLAINT [None]
  - SPINAL DISORDER [None]
  - THROMBOSIS [None]
  - VISUAL DISTURBANCE [None]
